FAERS Safety Report 10364842 (Version 1)
Quarter: 2014Q3

REPORT INFORMATION
  Report Type: Spontaneous
  Country: US (occurrence: None)
  Receive Date: 20140804
  Receipt Date: 20140804
  Transmission Date: 20150326
  Serious: Yes (Life-Threatening, Hospitalization)
  Sender: FDA-Public Use
  Company Number: None

PATIENT
  Age: 59 Year
  Sex: Male
  Weight: 99.79 kg

DRUGS (1)
  1. MELOXICAM 7.5MG ZYDUS PHARMACEUTICALS [Suspect]
     Active Substance: MELOXICAM
     Indication: STRESS
     Route: 048

REACTIONS (3)
  - Palpitations [None]
  - Cardiac valve disease [None]
  - Cardiac disorder [None]

NARRATIVE: CASE EVENT DATE: 20140303
